FAERS Safety Report 7128014-1 (Version None)
Quarter: 2010Q4

REPORT INFORMATION
  Report Type: 
  Country: None (occurrence: None)
  Receive Date: 20101112
  Receipt Date: 20101028
  Transmission Date: 20110411
  Serious: Yes (Death)
  Sender: FDA-Public Use
  Company Number: AE 2010-349

PATIENT
  Age: 39 Year
  Sex: Female

DRUGS (8)
  1. FAZACLO ODT [Suspect]
     Indication: PRODUCT USED FOR UNKNOWN INDICATION
     Dosage: 400 MG DAILY PO
     Route: 048
     Dates: start: 20100625, end: 20101018
  2. KLONOPIN [Concomitant]
  3. LEXAPRO [Concomitant]
  4. NEXIUM [Concomitant]
  5. MEGESTROL ACETATE [Concomitant]
  6. DEXAMETHASONE [Concomitant]
  7. VICODIN [Concomitant]
  8. HYDROMORPHONE HCL [Concomitant]

REACTIONS (2)
  - BRAIN NEOPLASM [None]
  - NEOPLASM MALIGNANT [None]
